FAERS Safety Report 6341363-X (Version None)
Quarter: 2009Q3

REPORT INFORMATION
  Report Type: 
  Country: None (occurrence: None)
  Receive Date: 20090904
  Receipt Date: 20090825
  Transmission Date: 20100115
  Serious: Yes (Death, Life-Threatening, Hospitalization)
  Sender: FDA-Public Use
  Company Number: FR-PFIZER INC-2009245672

PATIENT
  Age: 39 Year

DRUGS (8)
  1. EPIRUBICIN HCL [Suspect]
     Indication: METASTATIC GASTRIC CANCER
     Dosage: 270 MG, 1ST CYCLE, 3 CURES
     Dates: start: 20060305
  2. EPIRUBICIN HCL [Suspect]
     Dosage: 270 MG, 2ND CYCLE, 3 CURES
     Dates: start: 20060529, end: 20060728
  3. CISPLATIN [Suspect]
     Indication: METASTATIC GASTRIC CANCER
     Dosage: 297 MG, 1ST CYCLE, 3 CURES
     Dates: start: 20060305
  4. CISPLATIN [Suspect]
     Dosage: 297 MG, 2ND CYCLE, 3 CURES
     Dates: start: 20060529, end: 20060728
  5. CAPECITABINE [Suspect]
     Indication: METASTATIC GASTRIC CANCER
     Dosage: 150000 MG, 1ST CYCLE, 3 CURES
     Dates: start: 20060305
  6. CAPECITABINE [Suspect]
     Dosage: 126000 MG, 2ND CYCLE, 3 CURES
     Dates: start: 20060529, end: 20060728
  7. DURAGESIC-100 [Concomitant]
     Indication: PAIN
     Dosage: 75 UG/H
     Route: 062
     Dates: start: 20060905
  8. ERYTHROPOIETIN [Concomitant]

REACTIONS (8)
  - ABDOMINAL PAIN [None]
  - ANAEMIA [None]
  - ASTHENIA [None]
  - DISEASE PROGRESSION [None]
  - GENERAL PHYSICAL HEALTH DETERIORATION [None]
  - METASTATIC GASTRIC CANCER [None]
  - PAIN [None]
  - WEIGHT DECREASED [None]
